FAERS Safety Report 4731147-8 (Version None)
Quarter: 2005Q3

REPORT INFORMATION
  Report Type: 
  Country: None (occurrence: None)
  Receive Date: 20050802
  Receipt Date: 20031212
  Transmission Date: 20060218
  Serious: Yes (Hospitalization)
  Sender: FDA-Public Use
  Company Number: FR-RB-407-2004

PATIENT
  Age: 37 Year
  Sex: Male

DRUGS (3)
  1. BUPRENORPHINE HCL [Suspect]
     Dosage: DOSE UNKNOWN
     Route: 042
     Dates: start: 19960101
  2. BUPRENORPHINE HCL [Suspect]
  3. MEDICINALPRODUCT NOT SPECIFIED BY SENDER [Concomitant]

REACTIONS (8)
  - ARTHRITIS [None]
  - BACTERIAL INFECTION [None]
  - CYTOLYTIC HEPATITIS [None]
  - HYPERGAMMAGLOBULINAEMIA [None]
  - INTENTIONAL MISUSE [None]
  - INTERVERTEBRAL DISC DISORDER [None]
  - ORAL CANDIDIASIS [None]
  - SPONDYLITIS [None]
